FAERS Safety Report 9775859 (Version 1)
Quarter: 2013Q4

REPORT INFORMATION
  Report Type: Spontaneous
  Country: US (occurrence: US)
  Receive Date: 20131220
  Receipt Date: 20131220
  Transmission Date: 20140711
  Serious: Yes (Other)
  Sender: FDA-Public Use
  Company Number: US-GLAXOSMITHKLINE-A1054340A

PATIENT
  Sex: Female

DRUGS (3)
  1. ABREVA [Suspect]
     Indication: ORAL HERPES
     Route: 061
  2. VALTREX [Suspect]
     Indication: PRODUCT USED FOR UNKNOWN INDICATION
     Route: 065
  3. UNSPECIFIED MEDICATION [Suspect]
     Route: 065

REACTIONS (12)
  - Convulsion [Unknown]
  - Oral herpes [Unknown]
  - Condition aggravated [Unknown]
  - Lip swelling [Unknown]
  - Chapped lips [Unknown]
  - Lip haemorrhage [Unknown]
  - Dyspnoea [Unknown]
  - Nasal obstruction [Unknown]
  - Eating disorder [Unknown]
  - Depressed mood [Unknown]
  - Depression [Unknown]
  - Drug ineffective [Unknown]
